FAERS Safety Report 12918714 (Version 1)
Quarter: 2016Q4

REPORT INFORMATION
  Report Type: Report from Study
  Country: JP (occurrence: JP)
  Receive Date: 20161107
  Receipt Date: 20161107
  Transmission Date: 20170207
  Serious: Yes (Hospitalization)
  Sender: FDA-Public Use
  Company Number: JP-SA-2016SA200373

PATIENT
  Age: 55 Year
  Sex: Male

DRUGS (4)
  1. PHOSBLOCK [Suspect]
     Active Substance: FERRIC HYDROXIDE
     Route: 048
     Dates: start: 20150726
  2. NESP [Suspect]
     Active Substance: DARBEPOETIN ALFA
     Route: 042
     Dates: start: 20150726, end: 20151005
  3. NESP [Suspect]
     Active Substance: DARBEPOETIN ALFA
     Route: 042
     Dates: start: 20151005, end: 20151109
  4. NESP [Suspect]
     Active Substance: DARBEPOETIN ALFA
     Route: 042
     Dates: start: 20160323

REACTIONS (2)
  - Arteriovenous fistula site complication [Recovering/Resolving]
  - Diverticulitis [Recovering/Resolving]

NARRATIVE: CASE EVENT DATE: 20151107
